FAERS Safety Report 25190873 (Version 2)
Quarter: 2025Q3

REPORT INFORMATION
  Report Type: Spontaneous
  Country: US (occurrence: US)
  Receive Date: 20250411
  Receipt Date: 20250710
  Transmission Date: 20251021
  Serious: No
  Sender: BRISTOL-MYERS SQUIBB COMPANY
  Company Number: US-BRISTOL-MYERS SQUIBB COMPANY-2025-054635

PATIENT
  Age: 47 Year
  Sex: Male

DRUGS (3)
  1. NELVUTAMIG [Suspect]
     Active Substance: NELVUTAMIG
     Indication: Metastatic malignant melanoma
  2. NELVUTAMIG [Suspect]
     Active Substance: NELVUTAMIG
     Indication: Non-small cell lung cancer
  3. NELVUTAMIG [Suspect]
     Active Substance: NELVUTAMIG
     Indication: Urethral cancer

REACTIONS (1)
  - Lichen planopilaris [Recovering/Resolving]
